FAERS Safety Report 18911492 (Version 1)
Quarter: 2021Q1

REPORT INFORMATION
  Report Type: Spontaneous
  Country: US (occurrence: US)
  Receive Date: 20210218
  Receipt Date: 20210218
  Transmission Date: 20210420
  Serious: No
  Sender: FDA-Public Use
  Company Number: US-PFIZER INC-2021158953

PATIENT
  Age: 80 Year
  Sex: Female
  Weight: 67.13 kg

DRUGS (2)
  1. GABAPENTIN. [Suspect]
     Active Substance: GABAPENTIN
     Indication: HERPES ZOSTER
     Dosage: 100 MG, 1X/DAY (SHE TOOK ONE A DAY FOR THREE DAYS AND NOW IS UP TO THREE A DAY)
  2. GABAPENTIN. [Suspect]
     Active Substance: GABAPENTIN
     Dosage: 100 MG, 3X/DAY (SHE TOOK ONE A DAY FOR THREE DAYS AND NOW IS UP TO THREE A DAY)

REACTIONS (2)
  - Drug ineffective [Unknown]
  - Visual impairment [Unknown]
